FAERS Safety Report 5242629-7 (Version None)
Quarter: 2007Q1

REPORT INFORMATION
  Report Type: 
  Country: None (occurrence: None)
  Receive Date: 20070221
  Receipt Date: 20070209
  Transmission Date: 20070707
  Serious: Yes (Hospitalization, Disabling)
  Sender: FDA-Public Use
  Company Number: HQWYE294309FEB07

PATIENT
  Sex: Male

DRUGS (2)
  1. CORDARONE [Suspect]
     Indication: ARRHYTHMIA
     Dosage: UNSPECIFIED
     Route: 051
     Dates: start: 20060625, end: 20060625
  2. CORDARONE [Suspect]
     Indication: ARRHYTHMIA
     Route: 048
     Dates: start: 20060625, end: 20060801

REACTIONS (2)
  - OPTIC NEURITIS [None]
  - PAPILLOEDEMA [None]
